FAERS Safety Report 18930690 (Version 1)
Quarter: 2021Q1

REPORT INFORMATION
  Report Type: Spontaneous
  Country: CR (occurrence: CR)
  Receive Date: 20210223
  Receipt Date: 20210223
  Transmission Date: 20210420
  Serious: Yes (Other)
  Sender: FDA-Public Use
  Company Number: CR-PFIZER INC-2021175304

PATIENT
  Age: 75 Year
  Sex: Male

DRUGS (1)
  1. LIPITOR [Suspect]
     Active Substance: ATORVASTATIN CALCIUM
     Dosage: 40 MG, DAILY
     Route: 048
     Dates: start: 2017

REACTIONS (4)
  - Mental disorder [Unknown]
  - Hypertension [Unknown]
  - Cerebral infarction [Unknown]
  - Disorientation [Unknown]

NARRATIVE: CASE EVENT DATE: 20201012
